FAERS Safety Report 6310693-X (Version None)
Quarter: 2009Q3

REPORT INFORMATION
  Report Type: 
  Country: None (occurrence: None)
  Receive Date: 20090814
  Receipt Date: 20090804
  Transmission Date: 20100115
  Serious: Yes (Hospitalization, Disabling)
  Sender: FDA-Public Use
  Company Number: PR-MERCK-0805USA02793

PATIENT
  Age: 60 Year
  Sex: Female

DRUGS (2)
  1. FOSAMAX [Suspect]
     Indication: OSTEOPOROSIS
     Route: 048
     Dates: start: 19990101
  2. FOSAMAX [Suspect]
     Route: 048
     Dates: start: 19990101, end: 20040101

REACTIONS (26)
  - ABDOMINAL DISCOMFORT [None]
  - ALVEOLITIS [None]
  - ANXIETY [None]
  - ARTHROPATHY [None]
  - BRUXISM [None]
  - DENTAL CARIES [None]
  - DEPRESSION [None]
  - DYSLIPIDAEMIA [None]
  - GASTROINTESTINAL DISORDER [None]
  - GASTROOESOPHAGEAL REFLUX DISEASE [None]
  - GINGIVAL DISORDER [None]
  - GINGIVAL RECESSION [None]
  - HYPERTENSION [None]
  - IMPAIRED HEALING [None]
  - INAPPROPRIATE SCHEDULE OF DRUG ADMINISTRATION [None]
  - INFECTION [None]
  - LOOSE TOOTH [None]
  - OSTEONECROSIS [None]
  - PAIN [None]
  - PERIODONTITIS [None]
  - RESORPTION BONE INCREASED [None]
  - SLEEP DISORDER [None]
  - TOOTH FRACTURE [None]
  - TOOTHACHE [None]
  - UPPER RESPIRATORY TRACT INFECTION [None]
  - WEIGHT DECREASED [None]
